FAERS Safety Report 23325649 (Version 1)
Quarter: 2023Q4

REPORT INFORMATION
  Report Type: Spontaneous
  Country: IT (occurrence: IT)
  Receive Date: 20231221
  Receipt Date: 20231221
  Transmission Date: 20240110
  Serious: Yes (Other)
  Sender: FDA-Public Use
  Company Number: None

PATIENT
  Age: 59 Year

DRUGS (2)
  1. PACLITAXEL [Suspect]
     Active Substance: PACLITAXEL
     Indication: Ovarian cancer
     Dosage: 260 MG
     Route: 042
     Dates: start: 20231019, end: 20231019
  2. CARBOPLATIN [Suspect]
     Active Substance: CARBOPLATIN
     Indication: Ovarian cancer
     Dosage: 480 MG
     Route: 042
     Dates: start: 20231019, end: 20231019

REACTIONS (4)
  - Oxygen saturation decreased [Recovered/Resolved]
  - Bronchostenosis [Recovered/Resolved]
  - Chest discomfort [Recovered/Resolved]
  - Anaphylactoid reaction [Recovered/Resolved]

NARRATIVE: CASE EVENT DATE: 20231019
